FAERS Safety Report 4376002-0 (Version None)
Quarter: 2004Q2

REPORT INFORMATION
  Report Type: 
  Country: None (occurrence: None)
  Receive Date: 20040609
  Receipt Date: 20040609
  Transmission Date: 20050107
  Serious: Yes (Hospitalization)
  Sender: FDA-Public Use
  Company Number: None

PATIENT
  Age: 58 Year
  Sex: Male
  Weight: 100.2 kg

DRUGS (11)
  1. ENOXAPARIN SODIUM [Suspect]
     Dosage: 80 MG, Q 12 H, SUBCUTAN
     Route: 058
     Dates: start: 20040228, end: 20040229
  2. DIGOXIN [Concomitant]
  3. LISINOPRIL [Concomitant]
  4. PRILOSEC [Concomitant]
  5. TRAZODONE HCL (DESYREL) [Concomitant]
  6. ZYPREXA [Concomitant]
  7. FIRPSE,ODE [Concomitant]
  8. METOPROLOL TARTRATE [Concomitant]
  9. DOCUSATE SODIUM (COLACE) [Concomitant]
  10. DIPHENHYDRAMINE HCL [Concomitant]
  11. ACETAMINOPHEN [Concomitant]

REACTIONS (1)
  - HAEMORRHAGE [None]
